FAERS Safety Report 10553156 (Version 8)
Quarter: 2015Q2

REPORT INFORMATION
  Report Type: Spontaneous
  Country: DE (occurrence: DE)
  Receive Date: 20141030
  Receipt Date: 20150408
  Transmission Date: 20150821
  Serious: Yes (Other)
  Sender: FDA-Public Use
  Company Number: DE-ROCHE-1482040

PATIENT
  Age: 72 Year
  Sex: Female

DRUGS (6)
  1. LUCENTIS [Suspect]
     Active Substance: RANIBIZUMAB
     Route: 050
     Dates: start: 20141015, end: 20141015
  2. LUCENTIS [Suspect]
     Active Substance: RANIBIZUMAB
     Indication: AGE-RELATED MACULAR DEGENERATION
     Route: 050
     Dates: start: 20140425
  3. LUCENTIS [Suspect]
     Active Substance: RANIBIZUMAB
     Route: 050
     Dates: start: 20140528
  4. LUCENTIS [Suspect]
     Active Substance: RANIBIZUMAB
     Route: 050
     Dates: start: 20140424
  5. LUCENTIS [Suspect]
     Active Substance: RANIBIZUMAB
     Route: 050
     Dates: start: 20140701
  6. LUCENTIS [Suspect]
     Active Substance: RANIBIZUMAB
     Route: 050
     Dates: start: 20140909

REACTIONS (14)
  - Vitreous opacities [Unknown]
  - Multiple use of single-use product [Unknown]
  - Iridocyclitis [Unknown]
  - Toxic anterior segment syndrome [Unknown]
  - Endophthalmitis [Recovering/Resolving]
  - Uveitis [Unknown]
  - Retinal exudates [Unknown]
  - Streptococcus test positive [Unknown]
  - Anterior chamber disorder [Unknown]
  - Anterior chamber cell [Unknown]
  - Visual acuity reduced [Unknown]
  - Eye inflammation [Unknown]
  - Retinal oedema [Unknown]
  - Vitritis [Unknown]

NARRATIVE: CASE EVENT DATE: 20140909
